FAERS Safety Report 12497858 (Version 2)
Quarter: 2016Q2

REPORT INFORMATION
  Report Type: Report from Study
  Country: JP (occurrence: JP)
  Receive Date: 20160625
  Receipt Date: 20160629
  Transmission Date: 20160815
  Serious: Yes (Death, Other)
  Sender: FDA-Public Use
  Company Number: JP-009507513-1606JPN011806

PATIENT
  Age: 75 Year
  Sex: Female
  Weight: 40 kg

DRUGS (2)
  1. DAPTOMYCIN. [Suspect]
     Active Substance: DAPTOMYCIN
     Indication: SEPSIS
     Dosage: 6 MG/KG, QD
     Route: 042
     Dates: start: 20160610, end: 20160617
  2. MEROPEN [Concomitant]
     Active Substance: MEROPENEM
     Indication: SEPSIS
     Dosage: TOTAL DAILY DOSE: 1.5 G; DIVIDED DOSE, FREQUENCY UNKNOWN (INTERVAL 1 DAY)
     Route: 041
     Dates: start: 20160526, end: 20160608

REACTIONS (2)
  - Non-Hodgkin^s lymphoma [Fatal]
  - Blood urea increased [Not Recovered/Not Resolved]

NARRATIVE: CASE EVENT DATE: 20160612
